FAERS Safety Report 23550053 (Version 1)
Quarter: 2024Q1

REPORT INFORMATION
  Report Type: Spontaneous
  Country: US (occurrence: None)
  Receive Date: 20240220
  Receipt Date: 20240220
  Transmission Date: 20240409
  Serious: Yes (Other)
  Sender: FDA-Public Use
  Company Number: None

PATIENT
  Age: 36 Year
  Sex: Female
  Weight: 85.05 kg

DRUGS (2)
  1. VYVANSE [Suspect]
     Active Substance: LISDEXAMFETAMINE DIMESYLATE
     Indication: Attention deficit hyperactivity disorder
     Dosage: OTHER QUANTITY : 1 CAPSULE(S);?
     Route: 048
     Dates: start: 20240217, end: 20240217
  2. B vitamin mio water enhancer [Concomitant]

REACTIONS (5)
  - Dizziness [None]
  - Coordination abnormal [None]
  - Somnolence [None]
  - Hypersomnia [None]
  - Movement disorder [None]

NARRATIVE: CASE EVENT DATE: 20240217
